FAERS Safety Report 12998543 (Version 1)
Quarter: 2016Q4

REPORT INFORMATION
  Report Type: Spontaneous
  Country: US (occurrence: US)
  Receive Date: 20161203
  Receipt Date: 20161203
  Transmission Date: 20170207
  Serious: Yes (Other)
  Sender: FDA-Public Use
  Company Number: None

PATIENT
  Age: 13 Year
  Sex: Female
  Weight: 66.15 kg

DRUGS (3)
  1. SMZ/TMP [Suspect]
     Active Substance: SULFAMETHOXAZOLE\TRIMETHOPRIM
     Indication: INFECTION
     Dosage: ?          QUANTITY:1 TABLET(S); EVERY 12 HOURS?
     Route: 048
  2. TYLENOL [Concomitant]
     Active Substance: ACETAMINOPHEN
  3. DICLOFENAC SODIUM. [Concomitant]
     Active Substance: DICLOFENAC SODIUM

REACTIONS (11)
  - Impaired self-care [None]
  - Fatigue [None]
  - Arthralgia [None]
  - Sluggishness [None]
  - Musculoskeletal pain [None]
  - Influenza like illness [None]
  - Activities of daily living impaired [None]
  - Joint swelling [None]
  - Nasopharyngitis [None]
  - Musculoskeletal stiffness [None]
  - Chills [None]

NARRATIVE: CASE EVENT DATE: 20161031
